FAERS Safety Report 23703423 (Version 1)
Quarter: 2024Q2

REPORT INFORMATION
  Report Type: Report from Study
  Country: US (occurrence: US)
  Receive Date: 20240403
  Receipt Date: 20240403
  Transmission Date: 20240716
  Serious: Yes (Other)
  Sender: FDA-Public Use
  Company Number: US-MYLANLABS-2024M1029360

PATIENT
  Sex: Female
  Weight: 67.58 kg

DRUGS (1)
  1. GLATIRAMER ACETATE [Suspect]
     Active Substance: GLATIRAMER ACETATE
     Indication: Relapsing-remitting multiple sclerosis
     Dosage: 40 MILLIGRAM, 3XW (3 TIMES WEEKLY)
     Route: 065

REACTIONS (3)
  - Multiple sclerosis relapse [Unknown]
  - Paraesthesia [Unknown]
  - Gait disturbance [Unknown]
